FAERS Safety Report 5277161-8 (Version None)
Quarter: 2007Q1

REPORT INFORMATION
  Report Type: 
  Country: None (occurrence: None)
  Receive Date: 20061213
  Receipt Date: 20050202
  Transmission Date: 20070707
  Serious: No
  Sender: FDA-Public Use
  Company Number: 2005UW02228

PATIENT
  Age: 60 Year
  Sex: Male

DRUGS (3)
  1. SEROQUEL [Suspect]
     Dates: start: 20020101
  2. LAMICTAL [Concomitant]
  3. ADDERALL 10 [Concomitant]

REACTIONS (2)
  - ALANINE AMINOTRANSFERASE INCREASED [None]
  - ASPARTATE AMINOTRANSFERASE INCREASED [None]
